FAERS Safety Report 5592925-9 (Version None)
Quarter: 2008Q1

REPORT INFORMATION
  Report Type: 
  Country: None (occurrence: None)
  Receive Date: 20080114
  Receipt Date: 20080114
  Transmission Date: 20080703
  Serious: Yes (Life-Threatening)
  Sender: FDA-Public Use
  Company Number: None

PATIENT
  Age: 72 Year
  Sex: Female
  Weight: 139.2543 kg

DRUGS (12)
  1. COUMADIN [Suspect]
     Indication: ATRIAL FIBRILLATION
     Dosage: 2.5MG  5 DAYS/WK,  5MG  2 DAYS/WK  DAILY  PO
     Route: 048
  2. PERCOCET [Concomitant]
  3. ALDACTONE [Concomitant]
  4. FOLIC ACID [Concomitant]
  5. K-DUR 10 [Concomitant]
  6. LEVOXYL [Concomitant]
  7. MULTI-VITAMIN [Concomitant]
  8. TRAZODONE HCL [Concomitant]
  9. ATENOLOL [Concomitant]
  10. CALCIUM CITRATE [Concomitant]
  11. LASIX [Concomitant]
  12. CELEXA [Concomitant]

REACTIONS (6)
  - ANAEMIA [None]
  - COAGULOPATHY [None]
  - CONFUSIONAL STATE [None]
  - EPISTAXIS [None]
  - INTERNATIONAL NORMALISED RATIO DECREASED [None]
  - LETHARGY [None]
